FAERS Safety Report 14424478 (Version 1)
Quarter: 2018Q1

REPORT INFORMATION
  Report Type: Spontaneous
  Country: FR (occurrence: FR)
  Receive Date: 20180123
  Receipt Date: 20180123
  Transmission Date: 20180509
  Serious: Yes (Other)
  Sender: FDA-Public Use
  Company Number: FR-MYLANLABS-2018M1004016

PATIENT
  Age: 70 Year
  Sex: Male

DRUGS (5)
  1. VORICONAZOLE. [Suspect]
     Active Substance: VORICONAZOLE
     Dosage: 200 MG, BID
  2. TERBINAFINE. [Concomitant]
     Active Substance: TERBINAFINE
     Indication: SCEDOSPORIUM INFECTION
     Dosage: UNK
  3. VORICONAZOLE. [Suspect]
     Active Substance: VORICONAZOLE
     Dosage: 800 MG, BID
  4. VORICONAZOLE. [Suspect]
     Active Substance: VORICONAZOLE
     Indication: SCEDOSPORIUM INFECTION
     Dosage: 200 MG, BID
  5. MILTEFOSINE [Suspect]
     Active Substance: MILTEFOSINE
     Indication: SCEDOSPORIUM INFECTION
     Dosage: UNK

REACTIONS (7)
  - Visual impairment [Recovered/Resolved]
  - Squamous cell carcinoma of skin [Unknown]
  - Off label use [Recovered/Resolved]
  - Photosensitivity reaction [Recovered/Resolved]
  - Drug effective for unapproved indication [Unknown]
  - Nausea [Recovered/Resolved]
  - Asthenia [Recovered/Resolved]
